FAERS Safety Report 9322373 (Version 1)
Quarter: 2013Q2

REPORT INFORMATION
  Report Type: Spontaneous
  Country: US (occurrence: US)
  Receive Date: 20130531
  Receipt Date: 20130531
  Transmission Date: 20140414
  Serious: No
  Sender: FDA-Public Use
  Company Number: US-ASTRAZENECA-2013SE34875

PATIENT
  Age: 7 Year
  Sex: Female
  Weight: 23.1 kg

DRUGS (3)
  1. PULMICORT RESPULES [Suspect]
     Indication: ASTHMA
     Dosage: 0.5 MG MORNING,NOON AND EVENING AND AN ADDITIONAL DOSE DURING THE NIGHT IF SHE NEEDS IT
     Route: 055
     Dates: start: 2008
  2. XOPENEX [Concomitant]
     Indication: RESPIRATORY THERAPY
  3. IRON DROPS [Concomitant]
     Indication: BLOOD IRON DECREASED

REACTIONS (12)
  - Asthma [Unknown]
  - Iron deficiency anaemia [Unknown]
  - Decreased appetite [Unknown]
  - Diarrhoea [Unknown]
  - Influenza [Unknown]
  - Nausea [Unknown]
  - Pallor [Unknown]
  - Vomiting [Unknown]
  - Cough [Unknown]
  - Off label use [Unknown]
  - Drug ineffective [Unknown]
  - Intentional drug misuse [Unknown]
